FAERS Safety Report 10847045 (Version 2)
Quarter: 2015Q4

REPORT INFORMATION
  Report Type: Spontaneous
  Country: FR (occurrence: FR)
  Receive Date: 20150220
  Receipt Date: 20151021
  Transmission Date: 20160304
  Serious: Yes (Other)
  Sender: FDA-Public Use
  Company Number: FR-ARIAD-2015FR004522

PATIENT
  Sex: Male

DRUGS (2)
  1. ICLUSIG [Suspect]
     Active Substance: PONATINIB
     Dosage: 15 MG, QD
     Route: 048
     Dates: start: 20150131
  2. ICLUSIG [Suspect]
     Active Substance: PONATINIB
     Indication: CHRONIC MYELOID LEUKAEMIA
     Dosage: 30 MG, QD
     Route: 048
     Dates: start: 20150114, end: 20150130

REACTIONS (4)
  - Carotid arteriosclerosis [Unknown]
  - Condition aggravated [Unknown]
  - Peripheral arterial occlusive disease [Unknown]
  - Intermittent claudication [Unknown]
